FAERS Safety Report 5417881-5 (Version None)
Quarter: 2007Q3

REPORT INFORMATION
  Report Type: 
  Country: None (occurrence: None)
  Receive Date: 20070815
  Receipt Date: 20070803
  Transmission Date: 20080115
  Serious: Yes (Life-Threatening)
  Sender: FDA-Public Use
  Company Number: GXKR2007GB06739

PATIENT
  Age: 32 Year
  Sex: Male

DRUGS (7)
  1. AMLODIPINE [Suspect]
     Indication: HYPERTENSION
  2. ENALAPRIL MALEATE [Suspect]
     Indication: HYPERTENSION
  3. INSULIN, REGULAR (INSULIN) [Concomitant]
  4. METHYPREDNISOLONE (METHYLPREDNISOLONE) [Concomitant]
  5. BENZODIAZEPINES (NO INGREDIENTS/ SUBSTANCES) [Concomitant]
  6. PHENYTOIN [Concomitant]
  7. ACYCLOVIR [Concomitant]

REACTIONS (15)
  - BRAIN OEDEMA [None]
  - CONFUSIONAL STATE [None]
  - DEPRESSED LEVEL OF CONSCIOUSNESS [None]
  - EXTENSOR PLANTAR RESPONSE [None]
  - GRIMACING [None]
  - HYPERHIDROSIS [None]
  - HYPERREFLEXIA [None]
  - HYPERTENSION [None]
  - MUSCLE SPASMS [None]
  - NERVOUS SYSTEM DISORDER [None]
  - SINUS TACHYCARDIA [None]
  - TACHYPNOEA [None]
  - TRISMUS [None]
  - URINARY INCONTINENCE [None]
  - VASCULITIS [None]
